FAERS Safety Report 10286394 (Version 1)
Quarter: 2014Q3

REPORT INFORMATION
  Report Type: Spontaneous
  Country: US (occurrence: None)
  Receive Date: 20140708
  Receipt Date: 20140708
  Transmission Date: 20150326
  Serious: Yes (Death)
  Sender: FDA-Public Use
  Company Number: US-MDCO-14-00157

PATIENT
  Age: 49 Year
  Sex: Male

DRUGS (7)
  1. NOREPINEPHRINE BITARTRATE (NOREPINEPHRINE BITARTRATE) [Concomitant]
  2. ANGIOMAX [Suspect]
     Active Substance: BIVALIRUDIN
     Indication: CORONARY ANGIOPLASTY
     Dosage: 1 VIAL, 250 MG, INTRAVENOUS DRIP?31 JAN 2014 AT 3:11
     Route: 041
     Dates: start: 20140131
  3. ENALAPRIL MALEATE (ENALAPRIL MALEATE) [Concomitant]
     Active Substance: ENALAPRIL MALEATE
  4. MAGNESIUM SULFATE (MAGNESIUM SULFATE) [Concomitant]
  5. MIDAZOLAM HCL (MIDAZOLAM HYDROCHLORIDE) [Concomitant]
  6. FUROSEMIDE (FUROSEMIDE) [Concomitant]
     Active Substance: FUROSEMIDE
  7. ASPIRIN (ACETYLSALICYLIC ACID) [Concomitant]
     Active Substance: ASPIRIN

REACTIONS (1)
  - Death [None]

NARRATIVE: CASE EVENT DATE: 20140131
